FAERS Safety Report 19777646 (Version 3)
Quarter: 2024Q2

REPORT INFORMATION
  Report Type: Spontaneous
  Country: DE (occurrence: DE)
  Receive Date: 20210902
  Receipt Date: 20240621
  Transmission Date: 20240715
  Serious: Yes (Other)
  Sender: FDA-Public Use
  Company Number: DE-002147023-NVSC2021DE013400

PATIENT
  Sex: Female
  Weight: 70 kg

DRUGS (6)
  1. LETROZOLE [Suspect]
     Active Substance: LETROZOLE
     Indication: Breast cancer metastatic
     Dosage: 2.5 MILLIGRAM, ONCE A DAY
     Route: 048
     Dates: start: 20201126, end: 20240109
  2. KISQALI [Suspect]
     Active Substance: RIBOCICLIB
     Indication: Breast cancer metastatic
     Dosage: 600 MILLIGRAM, ONCE A DAY (600 MG, QD (SCHEME 21 DAYS INTAKE, 7 DAYS PAUSE)
     Route: 048
     Dates: start: 20201126, end: 20201223
  3. KISQALI [Suspect]
     Active Substance: RIBOCICLIB
     Dosage: 400 MILLIGRAM, ONCE A DAY (400 MG, QD (SCHEME 21 DAYS INTAKE, 7 DAYS PAUSE)
     Route: 048
     Dates: start: 20201224, end: 20210803
  4. KISQALI [Suspect]
     Active Substance: RIBOCICLIB
     Dosage: 200 MILLIGRAM, ONCE A DAY (400 MG, QD (SCHEME 21 DAYS INTAKE, 7 DAYS PAUSE)
     Route: 048
     Dates: start: 20210804
  5. KISQALI [Suspect]
     Active Substance: RIBOCICLIB
     Dosage: 200 MILLIGRAM, ONCE A DAY (SCHEME 21 DAYS INTAKE, 7 DAYS )
     Route: 048
  6. FULVESTRANT [Suspect]
     Active Substance: FULVESTRANT
     Indication: Breast cancer metastatic
     Dosage: 500 MILLIGRAM, Q4W ((DAILY DOSE))
     Route: 030

REACTIONS (3)
  - Neutropenia [Recovered/Resolved]
  - Leukopenia [Recovered/Resolved]
  - Thrombocytopenia [Recovered/Resolved]

NARRATIVE: CASE EVENT DATE: 20201223
